FAERS Safety Report 6974900-2 (Version None)
Quarter: 2010Q3

REPORT INFORMATION
  Report Type: 
  Country: None (occurrence: None)
  Receive Date: 20100909
  Receipt Date: 20081222
  Transmission Date: 20110219
  Serious: No
  Sender: FDA-Public Use
  Company Number: US-WYE-H07383008

PATIENT
  Sex: Female
  Weight: 68.1 kg

DRUGS (3)
  1. PRISTIQ [Suspect]
     Indication: PAIN
     Route: 048
     Dates: start: 20081208
  2. AVAPRO [Concomitant]
  3. METOPROLOL TARTRATE [Concomitant]
     Indication: ATRIAL FIBRILLATION

REACTIONS (3)
  - ATRIAL FIBRILLATION [None]
  - BLOOD PRESSURE INCREASED [None]
  - CONDITION AGGRAVATED [None]
